FAERS Safety Report 8667749 (Version 3)
Quarter: 2012Q4

REPORT INFORMATION
  Report Type: 
  Country: US (occurrence: US)
  Receive Date: 20120717
  Receipt Date: 20121116
  Transmission Date: 20130627
  Serious: Yes (Hospitalization)
  Sender: FDA-Public Use
  Company Number: US-BAYER-2012-070400

PATIENT
  Age: 47 Year
  Sex: Female
  Weight: 48.98 kg

DRUGS (8)
  1. YASMIN [Suspect]
     Indication: CONTRACEPTION
     Dosage: UNK
     Route: 048
     Dates: start: 200703, end: 200812
  2. OCELLA [Suspect]
     Indication: CONTRACEPTION
     Dosage: UNK
     Route: 048
     Dates: start: 200901, end: 201203
  3. UNCODEABLE ^UNCLASSIFIABLE^ [Concomitant]
     Dosage: 2 units daily
     Route: 058
  4. INSULIN [Concomitant]
  5. LISINOPRIL [Concomitant]
     Dosage: 10 mg, daily
     Route: 048
  6. PROCRIT [Concomitant]
     Dosage: 40000 u, UNK
     Route: 058
     Dates: end: 20120309
  7. NORVASC [Concomitant]
     Dosage: 2.5 mg, HS
     Route: 048
  8. ACE INHIBITOR NOS [Concomitant]

REACTIONS (7)
  - Deep vein thrombosis [None]
  - Injury [None]
  - Pain [None]
  - General physical health deterioration [None]
  - Emotional distress [None]
  - Pain [None]
  - Anxiety [None]
